FAERS Safety Report 25788621 (Version 3)
Quarter: 2025Q4

REPORT INFORMATION
  Report Type: Spontaneous
  Country: JP (occurrence: JP)
  Receive Date: 20250910
  Receipt Date: 20251117
  Transmission Date: 20260118
  Serious: Yes (Other)
  Sender: JOHNSON AND JOHNSON
  Company Number: JP-JNJFOC-20250911739

PATIENT
  Age: 70 Year
  Sex: Male
  Weight: 56.0 kg

DRUGS (2)
  1. TALVEY [Suspect]
     Active Substance: TALQUETAMAB-TGVS
     Indication: Plasma cell myeloma
     Dosage: DOSE UNKNOWN
     Route: 058
     Dates: start: 20250827, end: 20250902
  2. TALVEY [Suspect]
     Active Substance: TALQUETAMAB-TGVS
     Dosage: DOSE UNKNOWN
     Route: 058
     Dates: start: 20250910

REACTIONS (2)
  - Amylase increased [Recovered/Resolved]
  - Dysphagia [Recovered/Resolved]

NARRATIVE: CASE EVENT DATE: 20250902
